FAERS Safety Report 17298986 (Version 2)
Quarter: 2020Q1

REPORT INFORMATION
  Report Type: Spontaneous
  Country: US (occurrence: US)
  Receive Date: 20200121
  Receipt Date: 20200326
  Transmission Date: 20200409
  Serious: Yes (Other)
  Sender: FDA-Public Use
  Company Number: US-RADIUS HEALTH INC.-2020US000249

PATIENT
  Age: 55 Year
  Sex: Female

DRUGS (1)
  1. TYMLOS [Suspect]
     Active Substance: ABALOPARATIDE
     Indication: OSTEOPOROSIS POSTMENOPAUSAL
     Dosage: 80 MCG, DAILY
     Route: 058
     Dates: start: 20190205

REACTIONS (7)
  - Musculoskeletal pain [Unknown]
  - Back pain [Unknown]
  - Fatigue [Unknown]
  - Nausea [Unknown]
  - Breast cancer [Unknown]
  - Arthritis [Unknown]
  - Neck pain [Unknown]

NARRATIVE: CASE EVENT DATE: 20191227
